FAERS Safety Report 7150960-3 (Version None)
Quarter: 2010Q4

REPORT INFORMATION
  Report Type: 
  Country: None (occurrence: None)
  Receive Date: 20101210
  Receipt Date: 20101202
  Transmission Date: 20110411
  Serious: Yes (Disabling, Other)
  Sender: FDA-Public Use
  Company Number: A0890446A

PATIENT
  Sex: Male

DRUGS (10)
  1. PROMACTA [Suspect]
     Indication: IDIOPATHIC THROMBOCYTOPENIC PURPURA
     Dosage: 75MG PER DAY
     Dates: start: 20090518, end: 20101029
  2. CORTICOSTEROIDS [Concomitant]
  3. DANAZOL [Concomitant]
  4. METFORMIN [Concomitant]
  5. GLIPIZIDE [Concomitant]
  6. CARDURA [Concomitant]
  7. FINASTERIDE [Concomitant]
  8. OMEPRAZOLE [Concomitant]
  9. UNSPECIFIED MEDICATION [Concomitant]
  10. METAMUCIL-2 [Concomitant]

REACTIONS (15)
  - ALANINE AMINOTRANSFERASE INCREASED [None]
  - ATELECTASIS [None]
  - BENIGN PROSTATIC HYPERPLASIA [None]
  - CHRONIC MYELOMONOCYTIC LEUKAEMIA [None]
  - DIVERTICULUM INTESTINAL [None]
  - FIBROSIS [None]
  - HEPATOTOXICITY [None]
  - LEUKOCYTOSIS [None]
  - MONOCYTOSIS [None]
  - MYELODYSPLASTIC SYNDROME [None]
  - NEOPLASM [None]
  - NEPHROLITHIASIS [None]
  - NODULE [None]
  - RENAL CYST [None]
  - SPLENOMEGALY [None]
